FAERS Safety Report 4400829-X (Version None)
Quarter: 2004Q3

REPORT INFORMATION
  Report Type: 
  Country: None (occurrence: None)
  Receive Date: 20040907
  Receipt Date: 20030626
  Transmission Date: 20050211
  Serious: No
  Sender: FDA-Public Use
  Company Number: US-BRISTOL-MYERS SQUIBB COMPANY-12311551

PATIENT
  Age: 80 Year
  Sex: Male
  Weight: 67 kg

DRUGS (7)
  1. COUMADIN [Suspect]
     Indication: THROMBOSIS PROPHYLAXIS
     Dosage: DOSE REDUCED TO 1.5 MG THE ^PAST WEEK.^
     Route: 048
     Dates: start: 20030101
  2. NORVASC [Concomitant]
  3. PAXIL [Concomitant]
  4. MULTI-VITAMIN [Concomitant]
  5. ALEVE [Concomitant]
     Indication: PAIN IN EXTREMITY
  6. FISH OIL [Concomitant]
  7. CARDURA [Concomitant]

REACTIONS (1)
  - FEELING COLD [None]
